FAERS Safety Report 8729540 (Version 2)
Quarter: 2012Q4

REPORT INFORMATION
  Report Type: 
  Country: US (occurrence: US)
  Receive Date: 20120817
  Receipt Date: 20120830
  Transmission Date: 20130627
  Serious: Yes (Hospitalization)
  Sender: FDA-Public Use
  Company Number: US-ROCHE-1101171

PATIENT
  Sex: Male
  Weight: 99.88 kg

DRUGS (10)
  1. CELLCEPT [Suspect]
     Indication: RENAL TRANSPLANT
     Route: 048
     Dates: start: 20120806
  2. COREG [Concomitant]
     Route: 048
     Dates: start: 20120118
  3. CRESTOR [Concomitant]
     Route: 048
     Dates: start: 20120118
  4. FUROSEMIDE [Concomitant]
     Route: 048
     Dates: start: 20120116
  5. PEPCID [Concomitant]
     Route: 048
     Dates: start: 20120118
  6. PREDNISONE [Concomitant]
     Route: 048
     Dates: start: 20120118
  7. PROGRAF [Concomitant]
     Route: 048
     Dates: start: 20120118
  8. SEPTRA [Concomitant]
     Dosage: 40-80 MG
     Route: 048
  9. SODIUM BICARBONATE [Concomitant]
     Route: 048
  10. ULORIC [Concomitant]
     Route: 048
     Dates: start: 20110128

REACTIONS (3)
  - Diarrhoea [Unknown]
  - Weight decreased [Unknown]
  - Renal failure acute [Unknown]
